FAERS Safety Report 16956094 (Version 2)
Quarter: 2024Q1

REPORT INFORMATION
  Report Type: Spontaneous
  Country: US (occurrence: US)
  Receive Date: 20191024
  Receipt Date: 20240202
  Transmission Date: 20240410
  Serious: Yes (Other)
  Sender: FDA-Public Use
  Company Number: US-COOPERSURGICAL, INC.-US-2019CPS003228

PATIENT
  Sex: Female

DRUGS (1)
  1. PARAGARD T 380A [Suspect]
     Active Substance: COPPER
     Indication: Product used for unknown indication
     Dosage: UNK
     Route: 015
     Dates: start: 20080520, end: 2017

REACTIONS (12)
  - Injury associated with device [Unknown]
  - Device breakage [Recovered/Resolved]
  - Foreign body in reproductive tract [Recovered/Resolved]
  - Complication of device removal [Recovered/Resolved]
  - Pelvic abscess [Unknown]
  - Reproductive complication associated with device [Unknown]
  - Emotional distress [Unknown]
  - Anxiety [Unknown]
  - Anhedonia [Unknown]
  - Economic problem [Unknown]
  - Abdominal pain lower [Unknown]
  - Pain [Unknown]

NARRATIVE: CASE EVENT DATE: 20171025
